FAERS Safety Report 5757562-1 (Version None)
Quarter: 2008Q2

REPORT INFORMATION
  Report Type: 
  Country: None (occurrence: None)
  Receive Date: 20080529
  Receipt Date: 20080515
  Transmission Date: 20081010
  Serious: Yes (Other)
  Sender: FDA-Public Use
  Company Number: 066-20785-08050892

PATIENT
  Age: 76 Year

DRUGS (2)
  1. THALIDOMIDE - PHARMION (THALIDOMIDE) (CAPSULE) [Suspect]
     Indication: MULTIPLE MYELOMA
     Dosage: ORAL
     Route: 048
  2. FUROSEMIDE [Concomitant]

REACTIONS (2)
  - CORONARY ARTERY DISEASE [None]
  - PULMONARY HYPERTENSION [None]
